FAERS Safety Report 11421599 (Version 3)
Quarter: 2015Q3

REPORT INFORMATION
  Report Type: Spontaneous
  Country: US (occurrence: US)
  Receive Date: 20150826
  Receipt Date: 20150910
  Transmission Date: 20151125
  Serious: Yes (Other)
  Sender: FDA-Public Use
  Company Number: US-AMGEN-USASP2015086129

PATIENT
  Age: 52 Year
  Sex: Female

DRUGS (1)
  1. ENBREL [Suspect]
     Active Substance: ETANERCEPT
     Indication: RHEUMATOID ARTHRITIS
     Dosage: 50 MG, QWK
     Route: 058
     Dates: start: 20141230

REACTIONS (7)
  - Fatigue [Unknown]
  - Gastroenteritis viral [Unknown]
  - Influenza [Unknown]
  - Condition aggravated [Unknown]
  - Viral infection [Unknown]
  - Immune system disorder [Unknown]
  - Infection [Unknown]

NARRATIVE: CASE EVENT DATE: 2015
